FAERS Safety Report 9842150 (Version 1)
Quarter: 2014Q1

REPORT INFORMATION
  Report Type: Spontaneous
  Country: US (occurrence: None)
  Receive Date: 20140123
  Receipt Date: 20140123
  Transmission Date: 20141002
  Serious: Yes (Other)
  Sender: FDA-Public Use
  Company Number: None

PATIENT
  Age: 68 Year
  Sex: Female
  Weight: 63.5 kg

DRUGS (6)
  1. LEVOFLOXACIN 500MG WALGREENS [Suspect]
     Route: 048
     Dates: start: 20130812, end: 20130826
  2. LITHOBID [Concomitant]
  3. SYNTHROID [Concomitant]
  4. OMEPRAZOLE [Concomitant]
  5. TRAZODONE [Concomitant]
  6. LIVALO [Concomitant]

REACTIONS (1)
  - Tendonitis [None]
